FAERS Safety Report 6683524-6 (Version None)
Quarter: 2010Q2

REPORT INFORMATION
  Report Type: 
  Country: None (occurrence: None)
  Receive Date: 20100415
  Receipt Date: 20100414
  Transmission Date: 20101027
  Serious: Yes (Hospitalization)
  Sender: FDA-Public Use
  Company Number: FR-MERCK-0912FRA00042

PATIENT
  Age: 32 Year
  Sex: Female

DRUGS (5)
  1. STROMECTOL [Suspect]
     Indication: ACARODERMATITIS
     Route: 048
     Dates: start: 20091016, end: 20091016
  2. STROMECTOL [Suspect]
     Route: 048
     Dates: start: 20091001, end: 20091001
  3. STROMECTOL [Suspect]
     Route: 048
     Dates: start: 20091130, end: 20091130
  4. BENZYL BENZOATE [Concomitant]
     Indication: ACARODERMATITIS
     Route: 061
     Dates: start: 20091130, end: 20091130
  5. HYDROXYZINE HYDROCHLORIDE [Concomitant]
     Indication: PRURITUS
     Route: 048
     Dates: start: 20091130

REACTIONS (1)
  - PNEUMOTHORAX [None]
